FAERS Safety Report 5494538-6 (Version None)
Quarter: 2007Q4

REPORT INFORMATION
  Report Type: 
  Country: None (occurrence: None)
  Receive Date: 20071024
  Receipt Date: 20071010
  Transmission Date: 20080405
  Serious: Yes (Hospitalization)
  Sender: FDA-Public Use
  Company Number: US-ELI_LILLY_AND_COMPANY-US200710002642

PATIENT
  Sex: Female

DRUGS (10)
  1. FORTEO [Suspect]
     Indication: OSTEOPOROSIS
     Dates: start: 20070301
  2. FORTEO [Suspect]
     Dosage: UNK, UNK
     Dates: start: 20070101
  3. FORTEO [Suspect]
     Dosage: UNK, UNK
     Dates: start: 20070918
  4. EVISTA [Suspect]
     Dosage: 60 MG, DAILY (1/D)
     Dates: start: 20040101
  5. ZANTAC [Concomitant]
     Indication: GASTRIC DISORDER
     Dosage: 150 MG, UNK
  6. LIPITOR [Concomitant]
     Dosage: 10 MG, UNK
  7. VITAMINS [Concomitant]
  8. FLEXERIL [Concomitant]
     Indication: MUSCLE TWITCHING
     Dosage: 10 MG, UNK
  9. XANAX [Concomitant]
     Indication: NERVOUSNESS
  10. LORA TAB [Concomitant]
     Indication: PAIN
     Dosage: 10 MG, UNK

REACTIONS (10)
  - BLOOD BLISTER [None]
  - CHRONIC OBSTRUCTIVE PULMONARY DISEASE [None]
  - DYSPNOEA [None]
  - FALL [None]
  - HYPERTENSION [None]
  - HYPOTENSION [None]
  - MUSCULAR WEAKNESS [None]
  - PAIN [None]
  - SKIN DISCOLOURATION [None]
  - SPINAL FRACTURE [None]
